FAERS Safety Report 18538077 (Version 1)
Quarter: 2020Q4

REPORT INFORMATION
  Report Type: Spontaneous
  Country: PL (occurrence: PL)
  Receive Date: 20201124
  Receipt Date: 20201124
  Transmission Date: 20210114
  Serious: Yes (Hospitalization)
  Sender: FDA-Public Use
  Company Number: PL-ASTRAZENECA-2020SF54536

PATIENT
  Age: 64 Year
  Sex: Female

DRUGS (2)
  1. BUDESONIDE-FORMOTEROL [Suspect]
     Active Substance: BUDESONIDE\FORMOTEROL
     Indication: ASTHMA
     Dosage: 320/9, UNKNOWN UNKNOWN
     Route: 055
  2. BUDESONIDE-FORMOTEROL [Suspect]
     Active Substance: BUDESONIDE\FORMOTEROL
     Indication: ASTHMA
     Dosage: 400??G, UNKNWON UNKNOWN
     Route: 055

REACTIONS (2)
  - Asthma [Not Recovered/Not Resolved]
  - Off label use [Unknown]
